FAERS Safety Report 21342536 (Version 2)
Quarter: 2022Q3

REPORT INFORMATION
  Report Type: Spontaneous
  Country: FR (occurrence: FR)
  Receive Date: 20220916
  Receipt Date: 20220922
  Transmission Date: 20221027
  Serious: Yes (Hospitalization)
  Sender: FDA-Public Use
  Company Number: FR-ANIPHARMA-2022-FR-000175

PATIENT
  Age: 47 Year
  Sex: Female

DRUGS (9)
  1. CANDESARTAN CILEXETIL [Suspect]
     Active Substance: CANDESARTAN CILEXETIL
     Indication: Hypertension
     Dosage: 12 MG DAILY
     Route: 065
     Dates: end: 20220818
  2. PAXLOVID [Suspect]
     Active Substance: NIRMATRELVIR\RITONAVIR
     Dosage: 4 DF DAILY
     Route: 065
     Dates: start: 20220816, end: 20220818
  3. MYFORTIC [Suspect]
     Active Substance: MYCOPHENOLATE SODIUM
     Dosage: 2 DF DAILY
     Route: 065
     Dates: end: 20220818
  4. TACROLIMUS [Suspect]
     Active Substance: TACROLIMUS
     Dosage: 9 MG DAILY
     Route: 065
     Dates: start: 20201030, end: 20220817
  5. PANTOPRAZOLE [Suspect]
     Active Substance: PANTOPRAZOLE
     Dosage: 20 MG DAILY
     Route: 065
     Dates: end: 20220818
  6. PRAVASTATIN [Suspect]
     Active Substance: PRAVASTATIN
     Dosage: 1 DF DAILY
     Route: 065
     Dates: start: 20210723, end: 20220818
  7. HYDROCHLOROTHIAZIDE [Suspect]
     Active Substance: HYDROCHLOROTHIAZIDE
     Dosage: 12.5 MG DAILY
     Route: 065
     Dates: end: 20220818
  8. PREDNISONE [Concomitant]
     Active Substance: PREDNISONE
     Route: 065
  9. NEBIVOLOL [Concomitant]
     Active Substance: NEBIVOLOL
     Route: 065

REACTIONS (4)
  - Acute kidney injury [Unknown]
  - Rhabdomyolysis [Unknown]
  - Potentiating drug interaction [Unknown]
  - Lymphopenia [Unknown]

NARRATIVE: CASE EVENT DATE: 20220818
